FAERS Safety Report 6657967-0 (Version None)
Quarter: 2010Q1

REPORT INFORMATION
  Report Type: 
  Country: None (occurrence: None)
  Receive Date: 20100322
  Receipt Date: 20090702
  Transmission Date: 20100710
  Serious: Yes (Hospitalization, Disabling, Other)
  Sender: FDA-Public Use
  Company Number: 2009US-25375

PATIENT
  Sex: Female

DRUGS (3)
  1. ISOTRETINOIN [Suspect]
     Indication: ACNE
     Dosage: ORAL
     Route: 048
     Dates: start: 20040601, end: 20040701
  2. ACCUTANE [Suspect]
     Indication: ACNE
     Dates: start: 20040301
  3. AMNESTEEM [Suspect]
     Indication: ACNE

REACTIONS (1)
  - INFLAMMATORY BOWEL DISEASE [None]
